FAERS Safety Report 8141910-1 (Version None)
Quarter: 2012Q1

REPORT INFORMATION
  Report Type: 
  Country: None (occurrence: None)
  Receive Date: 20120216
  Receipt Date: 20120208
  Transmission Date: 20120608
  Serious: Yes (Death)
  Sender: FDA-Public Use
  Company Number: US-GLAXOSMITHKLINE-A0961181A

PATIENT
  Sex: Female

DRUGS (2)
  1. TYKERB [Suspect]
     Indication: BREAST CANCER
     Dosage: 1250MG PER DAY
     Route: 065
     Dates: end: 20110929
  2. XELODA [Concomitant]
     Dates: end: 20110929

REACTIONS (3)
  - GENERAL PHYSICAL HEALTH DETERIORATION [None]
  - BREAST CANCER METASTATIC [None]
  - NEOPLASM MALIGNANT [None]
